FAERS Safety Report 16929719 (Version 1)
Quarter: 2019Q4

REPORT INFORMATION
  Report Type: Spontaneous
  Country: CA (occurrence: CA)
  Receive Date: 20191017
  Receipt Date: 20191017
  Transmission Date: 20200122
  Serious: Yes (Disabling, Other)
  Sender: FDA-Public Use
  Company Number: CA-PFIZER INC-2017074314

PATIENT
  Age: 88 Year
  Sex: Female

DRUGS (9)
  1. IBRANCE [Suspect]
     Active Substance: PALBOCICLIB
     Dosage: 100 MG, CYCLIC FOR 3 WEEKS ON / 1 WEEK OFF
     Route: 048
  2. ZOPICLONE [Concomitant]
     Active Substance: ZOPICLONE
     Dosage: 2.5 MG, AS NEEDED
  3. FASLODEX [Concomitant]
     Active Substance: FULVESTRANT
     Dosage: UNK, (EVERY 2 WEEK, THEN EVERY MONTH)
  4. ZANTAC [Concomitant]
     Active Substance: RANITIDINE HYDROCHLORIDE
     Dosage: 150 MG, PM (AT NIGHT)
  5. IBRANCE [Suspect]
     Active Substance: PALBOCICLIB
     Indication: BREAST CANCER METASTATIC
     Dosage: 125 MG, CYCLIC, (21 DAYS IN AND 7 DAYS OFF)
     Route: 048
     Dates: start: 201702
  6. IBRANCE [Suspect]
     Active Substance: PALBOCICLIB
     Dosage: 125MG, CYCLIC (DAILY X21 DAYS EVERY 28 DAYS)
     Route: 048
     Dates: start: 20170522
  7. ZANTAC [Concomitant]
     Active Substance: RANITIDINE HYDROCHLORIDE
     Dosage: UNK, AS NEEDED
  8. FASLODEX [Concomitant]
     Active Substance: FULVESTRANT
     Dosage: UNK, EVERY MONTH
  9. ZOPICLONE [Concomitant]
     Active Substance: ZOPICLONE
     Dosage: UNK AT NIGHT

REACTIONS (3)
  - Blood pressure decreased [Recovered/Resolved]
  - Epistaxis [Recovered/Resolved]
  - Cerebrovascular accident [Recovering/Resolving]

NARRATIVE: CASE EVENT DATE: 20170803
